FAERS Safety Report 4710890-0 (Version None)
Quarter: 2005Q3

REPORT INFORMATION
  Report Type: 
  Country: None (occurrence: None)
  Receive Date: 20050706
  Receipt Date: 20050706
  Transmission Date: 20060218
  Serious: Yes (Life-Threatening)
  Sender: FDA-Public Use
  Company Number: None

PATIENT
  Age: 67 Year
  Sex: Female
  Weight: 122 kg

DRUGS (7)
  1. FERRLECIT [Suspect]
     Indication: ANAEMIA
     Dosage: 25 MG ONCE IV
     Route: 042
     Dates: start: 20050618, end: 20050618
  2. DOCUSATE SODIUM [Concomitant]
  3. EPOETIN ALFA [Concomitant]
  4. METOPROLOL [Concomitant]
  5. NITROGLYCERIN [Concomitant]
  6. INSULIN [Concomitant]
  7. CLONIDINE [Concomitant]

REACTIONS (2)
  - BRADYCARDIA [None]
  - CARDIAC ARREST [None]
